FAERS Safety Report 12144863 (Version 1)
Quarter: 2016Q1

REPORT INFORMATION
  Report Type: Spontaneous
  Country: US (occurrence: None)
  Receive Date: 20160303
  Receipt Date: 20160303
  Transmission Date: 20160526
  Serious: Yes (Hospitalization)
  Sender: FDA-Public Use
  Company Number: None

PATIENT
  Age: 89 Year
  Sex: Female
  Weight: 63.5 kg

DRUGS (11)
  1. LEVOTHYROXINE (SYNTHROID, LEVOTHYROID) [Concomitant]
  2. INSULIN ASPART (NOVOLOG) [Concomitant]
  3. NITROGLYCERIN (NITRODUR) [Concomitant]
  4. XARELTO [Suspect]
     Active Substance: RIVAROXABAN
     Indication: DEEP VEIN THROMBOSIS
     Route: 048
     Dates: start: 20151215, end: 20160302
  5. DOCUSATE SODIUM (COLACE) [Concomitant]
  6. HYDROCHLOROTHIAZIDE (MICROZIDE) [Concomitant]
  7. LOSARTAN (COZAAR) [Concomitant]
  8. LIPITOR [Concomitant]
     Active Substance: ATORVASTATIN CALCIUM
  9. CARVEDILOL (COREG) [Concomitant]
  10. LASIX [Concomitant]
     Active Substance: FUROSEMIDE
  11. OMEPRAZOLE (PRILOSEC) [Concomitant]

REACTIONS (3)
  - Incorrect drug administration duration [None]
  - Wrong technique in product usage process [None]
  - Incorrect dose administered [None]

NARRATIVE: CASE EVENT DATE: 20160302
